FAERS Safety Report 9493507 (Version 1)
Quarter: 2013Q3

REPORT INFORMATION
  Report Type: Spontaneous
  Country: US (occurrence: US)
  Receive Date: 20130902
  Receipt Date: 20130902
  Transmission Date: 20140515
  Serious: No
  Sender: FDA-Public Use
  Company Number: US-PFIZER INC-2013251136

PATIENT
  Age: 47 Year
  Sex: Female
  Weight: 73.92 kg

DRUGS (6)
  1. CHANTIX [Suspect]
     Indication: SMOKING CESSATION THERAPY
     Dosage: 0.5 MG, 1X/DAY
     Route: 048
     Dates: start: 201308, end: 201308
  2. CHANTIX [Suspect]
     Dosage: 1 MG, 2X/DAY
     Route: 048
     Dates: start: 201308
  3. LEXAPRO [Concomitant]
     Dosage: UNK
  4. ARMOUR THYROID [Concomitant]
     Dosage: UNK
  5. FLEXERIL [Concomitant]
     Indication: BREAST CANCER
     Dosage: UNK, AS NEEDED
  6. ZOFRAN [Concomitant]
     Indication: NAUSEA
     Dosage: UNK, AS NEEDED

REACTIONS (3)
  - Breast pain [Unknown]
  - Drug withdrawal syndrome [Unknown]
  - Mood swings [Unknown]
